FAERS Safety Report 8241561-4 (Version None)
Quarter: 2012Q1

REPORT INFORMATION
  Report Type: 
  Country: None (occurrence: None)
  Receive Date: 20120328
  Receipt Date: 20120314
  Transmission Date: 20120608
  Serious: Yes (Hospitalization)
  Sender: FDA-Public Use
  Company Number: FR-ROCHE-1053519

PATIENT
  Sex: Female

DRUGS (6)
  1. DIPROSONE [Concomitant]
     Indication: PRODUCT USED FOR UNKNOWN INDICATION
     Dates: start: 20090801
  2. XOLAIR [Suspect]
     Indication: PRODUCT USED FOR UNKNOWN INDICATION
     Route: 065
     Dates: start: 20110201
  3. SINGULAIR [Concomitant]
     Dates: start: 20090801
  4. NEORAL [Suspect]
     Indication: PRODUCT USED FOR UNKNOWN INDICATION
     Route: 048
     Dates: start: 20111001
  5. NEORAL [Suspect]
     Dosage: REDUCED DOSE
  6. FLUTICASONE PROPIONATE/SALMETEROL [Concomitant]

REACTIONS (1)
  - MYOSITIS [None]
